FAERS Safety Report 5144238-7 (Version None)
Quarter: 2006Q4

REPORT INFORMATION
  Report Type: 
  Country: None (occurrence: None)
  Receive Date: 20061106
  Receipt Date: 20061026
  Transmission Date: 20070319
  Serious: Yes (Hospitalization)
  Sender: FDA-Public Use
  Company Number: CA-ROCHE-469419

PATIENT
  Sex: Male
  Weight: 60 kg

DRUGS (2)
  1. PEG-INTERFERON A-2A (RO 25-8310) [Suspect]
     Route: 058
     Dates: start: 20020325, end: 20030214
  2. RIBAVIRIN [Suspect]
     Route: 048
     Dates: start: 20020325, end: 20030214

REACTIONS (5)
  - CARDIAC FAILURE [None]
  - CHEST PAIN [None]
  - CONGESTIVE CARDIOMYOPATHY [None]
  - FATIGUE [None]
  - MYALGIA [None]
